FAERS Safety Report 6581866-6 (Version None)
Quarter: 2010Q1

REPORT INFORMATION
  Report Type: 
  Country: None (occurrence: None)
  Receive Date: 20100212
  Receipt Date: 20100212
  Transmission Date: 20100710
  Serious: Yes (Other)
  Sender: FDA-Public Use
  Company Number: None

PATIENT
  Age: 57 Year
  Sex: Male
  Weight: 68 kg

DRUGS (4)
  1. CIPROFLOXACIN [Suspect]
     Indication: CROHN'S DISEASE
     Dosage: 500 MG BID PO
     Route: 048
     Dates: start: 20091023, end: 20091027
  2. CIPROFLOXACIN [Suspect]
     Indication: ENTEROCOLITIS INFECTIOUS
     Dosage: 500 MG BID PO
     Route: 048
     Dates: start: 20091023, end: 20091027
  3. METRONIDAZOLE [Suspect]
     Indication: CROHN'S DISEASE
     Dosage: 500 MG TID PO
     Route: 048
     Dates: start: 20091023, end: 20091027
  4. METRONIDAZOLE [Suspect]
     Indication: ENTEROCOLITIS INFECTIOUS
     Dosage: 500 MG TID PO
     Route: 048
     Dates: start: 20091023, end: 20091027

REACTIONS (3)
  - HYPERSENSITIVITY [None]
  - RASH MACULO-PAPULAR [None]
  - RASH PRURITIC [None]
